FAERS Safety Report 25859218 (Version 1)
Quarter: 2025Q3

REPORT INFORMATION
  Report Type: Spontaneous
  Country: EU (occurrence: EU)
  Receive Date: 20250929
  Receipt Date: 20250929
  Transmission Date: 20251020
  Serious: Yes (Other)
  Sender: PFIZER
  Company Number: EU-MYLANLABS-2025M1076770

PATIENT
  Sex: Male

DRUGS (40)
  1. VINCRISTINE SULFATE [Suspect]
     Active Substance: VINCRISTINE SULFATE
     Indication: Chronic lymphocytic leukaemia
  2. VINCRISTINE SULFATE [Suspect]
     Active Substance: VINCRISTINE SULFATE
     Indication: Diffuse large B-cell lymphoma
  3. VINCRISTINE SULFATE [Suspect]
     Active Substance: VINCRISTINE SULFATE
     Indication: Leukaemia recurrent
  4. VINCRISTINE SULFATE [Suspect]
     Active Substance: VINCRISTINE SULFATE
     Indication: Richter^s syndrome
  5. DOXORUBICIN HYDROCHLORIDE [Suspect]
     Active Substance: DOXORUBICIN HYDROCHLORIDE
     Indication: Chronic lymphocytic leukaemia
  6. DOXORUBICIN HYDROCHLORIDE [Suspect]
     Active Substance: DOXORUBICIN HYDROCHLORIDE
     Indication: Diffuse large B-cell lymphoma
  7. DOXORUBICIN HYDROCHLORIDE [Suspect]
     Active Substance: DOXORUBICIN HYDROCHLORIDE
     Indication: Leukaemia recurrent
  8. DOXORUBICIN HYDROCHLORIDE [Suspect]
     Active Substance: DOXORUBICIN HYDROCHLORIDE
     Indication: Richter^s syndrome
  9. TISLELIZUMAB [Suspect]
     Active Substance: TISLELIZUMAB
     Indication: Chronic lymphocytic leukaemia
  10. TISLELIZUMAB [Suspect]
     Active Substance: TISLELIZUMAB
     Indication: Diffuse large B-cell lymphoma
  11. TISLELIZUMAB [Suspect]
     Active Substance: TISLELIZUMAB
     Indication: Leukaemia recurrent
  12. TISLELIZUMAB [Suspect]
     Active Substance: TISLELIZUMAB
     Indication: Richter^s syndrome
  13. BRUKINSA [Suspect]
     Active Substance: ZANUBRUTINIB
     Indication: Chronic lymphocytic leukaemia
  14. BRUKINSA [Suspect]
     Active Substance: ZANUBRUTINIB
     Indication: Diffuse large B-cell lymphoma
  15. BRUKINSA [Suspect]
     Active Substance: ZANUBRUTINIB
     Indication: Leukaemia recurrent
  16. BRUKINSA [Suspect]
     Active Substance: ZANUBRUTINIB
     Indication: Richter^s syndrome
  17. CYCLOPHOSPHAMIDE [Suspect]
     Active Substance: CYCLOPHOSPHAMIDE
     Indication: Chronic lymphocytic leukaemia
  18. CYCLOPHOSPHAMIDE [Suspect]
     Active Substance: CYCLOPHOSPHAMIDE
     Indication: Diffuse large B-cell lymphoma
  19. CYCLOPHOSPHAMIDE [Suspect]
     Active Substance: CYCLOPHOSPHAMIDE
     Indication: Leukaemia recurrent
  20. CYCLOPHOSPHAMIDE [Suspect]
     Active Substance: CYCLOPHOSPHAMIDE
     Indication: Richter^s syndrome
  21. BENDAMUSTINE HYDROCHLORIDE [Suspect]
     Active Substance: BENDAMUSTINE HYDROCHLORIDE
     Indication: Chronic lymphocytic leukaemia
  22. BENDAMUSTINE HYDROCHLORIDE [Suspect]
     Active Substance: BENDAMUSTINE HYDROCHLORIDE
     Indication: Diffuse large B-cell lymphoma
  23. BENDAMUSTINE HYDROCHLORIDE [Suspect]
     Active Substance: BENDAMUSTINE HYDROCHLORIDE
     Indication: Leukaemia recurrent
  24. BENDAMUSTINE HYDROCHLORIDE [Suspect]
     Active Substance: BENDAMUSTINE HYDROCHLORIDE
     Indication: Richter^s syndrome
  25. IBRUTINIB [Suspect]
     Active Substance: IBRUTINIB
     Indication: Chronic lymphocytic leukaemia
  26. IBRUTINIB [Suspect]
     Active Substance: IBRUTINIB
     Indication: Diffuse large B-cell lymphoma
  27. IBRUTINIB [Suspect]
     Active Substance: IBRUTINIB
     Indication: Leukaemia recurrent
  28. IBRUTINIB [Suspect]
     Active Substance: IBRUTINIB
     Indication: Richter^s syndrome
  29. FLUDARABINE PHOSPHATE [Suspect]
     Active Substance: FLUDARABINE PHOSPHATE
     Indication: Chronic lymphocytic leukaemia
  30. FLUDARABINE PHOSPHATE [Suspect]
     Active Substance: FLUDARABINE PHOSPHATE
     Indication: Diffuse large B-cell lymphoma
  31. FLUDARABINE PHOSPHATE [Suspect]
     Active Substance: FLUDARABINE PHOSPHATE
     Indication: Leukaemia recurrent
  32. FLUDARABINE PHOSPHATE [Suspect]
     Active Substance: FLUDARABINE PHOSPHATE
     Indication: Richter^s syndrome
  33. VENETOCLAX [Suspect]
     Active Substance: VENETOCLAX
     Indication: Chronic lymphocytic leukaemia
  34. VENETOCLAX [Suspect]
     Active Substance: VENETOCLAX
     Indication: Diffuse large B-cell lymphoma
  35. VENETOCLAX [Suspect]
     Active Substance: VENETOCLAX
     Indication: Leukaemia recurrent
  36. VENETOCLAX [Suspect]
     Active Substance: VENETOCLAX
     Indication: Richter^s syndrome
  37. PREDNISOLONE [Suspect]
     Active Substance: PREDNISOLONE
     Indication: Chronic lymphocytic leukaemia
  38. PREDNISOLONE [Suspect]
     Active Substance: PREDNISOLONE
     Indication: Diffuse large B-cell lymphoma
  39. PREDNISOLONE [Suspect]
     Active Substance: PREDNISOLONE
     Indication: Leukaemia recurrent
  40. PREDNISOLONE [Suspect]
     Active Substance: PREDNISOLONE
     Indication: Richter^s syndrome

REACTIONS (4)
  - Lymphadenopathy [Unknown]
  - Anaemia [Unknown]
  - Malignant neoplasm progression [Unknown]
  - Thrombocytopenia [Unknown]
